FAERS Safety Report 5921059-6 (Version None)
Quarter: 2008Q4

REPORT INFORMATION
  Report Type: 
  Country: None (occurrence: None)
  Receive Date: 20081016
  Receipt Date: 20081008
  Transmission Date: 20090506
  Serious: Yes (Hospitalization)
  Sender: FDA-Public Use
  Company Number: US-PFIZER INC-2008084319

PATIENT
  Sex: Male
  Weight: 88 kg

DRUGS (2)
  1. SUTENT [Suspect]
     Indication: RENAL CELL CARCINOMA
     Route: 048
     Dates: start: 20080909
  2. ERLOTINIB [Suspect]
     Indication: RENAL CELL CARCINOMA
     Route: 048
     Dates: start: 20080909

REACTIONS (1)
  - SYNCOPE [None]
